FAERS Safety Report 15265069 (Version 4)
Quarter: 2019Q3

REPORT INFORMATION
  Report Type: Spontaneous
  Country: US (occurrence: US)
  Receive Date: 20180810
  Receipt Date: 20190918
  Transmission Date: 20191004
  Serious: No
  Sender: FDA-Public Use
  Company Number: US-PFIZER INC-2017081489

PATIENT
  Age: 57 Year
  Sex: Male
  Weight: 111 kg

DRUGS (3)
  1. INSULIN [Concomitant]
     Active Substance: INSULIN NOS
     Indication: DIABETES MELLITUS
     Dosage: UNK
  2. LYRICA [Suspect]
     Active Substance: PREGABALIN
     Indication: NEUROPATHY PERIPHERAL
  3. LYRICA [Suspect]
     Active Substance: PREGABALIN
     Indication: PAIN
     Dosage: 600 MG, DAILY (THREE A DAY BREAKFAST, LUNCH AND DINNER)

REACTIONS (3)
  - Intentional product use issue [Unknown]
  - Herpes zoster [Unknown]
  - Feeling abnormal [Unknown]
